FAERS Safety Report 7131564-5 (Version None)
Quarter: 2010Q4

REPORT INFORMATION
  Report Type: 
  Country: None (occurrence: None)
  Receive Date: 20101201
  Receipt Date: 20101119
  Transmission Date: 20110411
  Serious: Yes (Hospitalization, Other)
  Sender: FDA-Public Use
  Company Number: US-ELI_LILLY_AND_COMPANY-US201011003562

PATIENT
  Sex: Male
  Weight: 85.261 kg

DRUGS (10)
  1. PRASUGREL HYDROCHLORIDE [Suspect]
     Indication: ACUTE CORONARY SYNDROME
     Dosage: 60 MG, OTHER
     Dates: start: 20100629, end: 20100629
  2. PRASUGREL HYDROCHLORIDE [Suspect]
     Dosage: 10 MG, DAILY (1/D)
     Dates: start: 20100630
  3. PRASUGREL HYDROCHLORIDE [Suspect]
     Dosage: 5 MG, DAILY (1/D)
  4. ASPIRIN [Concomitant]
     Indication: ANTICOAGULANT THERAPY
     Dosage: 325 MG, DAILY (1/D)
     Dates: start: 20100630
  5. ASPIRIN [Concomitant]
     Dosage: 81 MG, DAILY (1/D)
  6. ZOCOR [Concomitant]
     Indication: HYPERLIPIDAEMIA
     Dosage: 40 MG, DAILY (1/D)
     Route: 048
     Dates: start: 20100628
  7. TOPROL-XL [Concomitant]
     Indication: HYPERTENSION
     Dosage: 50 MG, DAILY (1/D)
     Route: 048
     Dates: start: 20100629
  8. PROTONIX [Concomitant]
     Indication: ABDOMINAL PAIN UPPER
     Dosage: 80 MG, 2/D
     Route: 048
     Dates: start: 20100703
  9. NORVASC [Concomitant]
     Indication: HYPERTENSION
     Dosage: 10 MG, 2/D
     Route: 048
     Dates: start: 20100702
  10. ZESTRIL [Concomitant]
     Indication: HYPERTENSION
     Dosage: 40 MG, 2/D
     Route: 048
     Dates: start: 20100629

REACTIONS (1)
  - PERIPHERAL ARTERIAL OCCLUSIVE DISEASE [None]
